FAERS Safety Report 8921900 (Version 3)
Quarter: 2013Q1

REPORT INFORMATION
  Report Type: Spontaneous
  Country: BR (occurrence: BR)
  Receive Date: 20121121
  Receipt Date: 20130327
  Transmission Date: 20140127
  Serious: Yes (Other)
  Sender: FDA-Public Use
  Company Number: BR-PFIZER INC-2012253376

PATIENT
  Age: 44 Year
  Sex: Male
  Weight: 63 kg

DRUGS (2)
  1. TECTA [Suspect]
     Indication: GASTROOESOPHAGEAL REFLUX DISEASE
     Dosage: 1 DOSAGE FORM (DF), DAILY
     Route: 048
     Dates: start: 20120805, end: 20121004
  2. CARBAMAZEPINE [Concomitant]
     Indication: CONVULSION
     Dosage: 2 X 200 MG DOSAGE FORM (DF), DAILY
     Route: 048
     Dates: start: 201207

REACTIONS (5)
  - Diverticulitis [Unknown]
  - Dizziness [Recovered/Resolved]
  - Pallor [Recovered/Resolved]
  - Feeling cold [Recovered/Resolved]
  - Pruritus [Recovered/Resolved]
